FAERS Safety Report 9654961 (Version 1)
Quarter: 2013Q4

REPORT INFORMATION
  Report Type: Spontaneous
  Country: US (occurrence: US)
  Receive Date: 20131029
  Receipt Date: 20131029
  Transmission Date: 20140711
  Serious: Yes (Other)
  Sender: FDA-Public Use
  Company Number: US-NAPPMUNDI-USA-2012-0091804

PATIENT
  Age: 79 Year
  Sex: Female

DRUGS (6)
  1. OXYCONTIN (NDA 22-272) [Suspect]
     Indication: PAIN
  2. OXYCONTIN (NDA 22-272) [Suspect]
     Dosage: 40 MG, TID
     Route: 048
  3. MORPHINE /00036302/ [Suspect]
     Indication: PAIN
     Dosage: UNK
     Route: 042
     Dates: start: 201111, end: 201202
  4. LEXAPRO [Suspect]
     Indication: DEPRESSION
     Dosage: 20 MG, UNK
     Route: 048
     Dates: start: 2007
  5. LUNESTA [Suspect]
     Indication: PRODUCT USED FOR UNKNOWN INDICATION
     Dosage: 3 MG, HS
  6. VICODIN [Concomitant]
     Indication: PAIN
     Dosage: UNK

REACTIONS (5)
  - Prescribed overdose [Unknown]
  - Hallucination, auditory [Unknown]
  - Hallucination, visual [Unknown]
  - Somnolence [Recovering/Resolving]
  - Crying [Recovered/Resolved]
